FAERS Safety Report 15664035 (Version 2)
Quarter: 2019Q1

REPORT INFORMATION
  Report Type: Report from Study
  Country: None (occurrence: CA)
  Receive Date: 20181128
  Receipt Date: 20190311
  Transmission Date: 20190417
  Serious: Yes (Hospitalization, Other)
  Sender: FDA-Public Use
  Company Number: CA-ABBVIE-18K-028-2566677-00

PATIENT
  Age: 60 Year
  Sex: Male

DRUGS (1)
  1. HUMIRA [Suspect]
     Active Substance: ADALIMUMAB
     Indication: CROHN^S DISEASE
     Route: 058
     Dates: start: 20160118, end: 20181001

REACTIONS (8)
  - Dyspnoea [Unknown]
  - Cough [Unknown]
  - Bacteraemia [Unknown]
  - Loss of consciousness [Unknown]
  - Confusional state [Unknown]
  - Pneumonia legionella [Unknown]
  - Amnesia [Unknown]
  - Vomiting [Unknown]

NARRATIVE: CASE EVENT DATE: 2018
